FAERS Safety Report 8264831-2 (Version None)
Quarter: 2012Q2

REPORT INFORMATION
  Report Type: 
  Country: None (occurrence: None)
  Receive Date: 20120403
  Receipt Date: 20120322
  Transmission Date: 20120825
  Serious: Yes (Other)
  Sender: FDA-Public Use
  Company Number: 2012S1000285

PATIENT
  Age: 45 Year
  Sex: Male
  Weight: 67 kg

DRUGS (2)
  1. REDEVANT (PITAVASTATIN) [Suspect]
     Indication: DYSLIPIDAEMIA
     Dosage: 2 MG;1X;PO
     Route: 048
  2. REDEVANT (PITAVASTATIN) [Suspect]
     Indication: BLOOD TRIGLYCERIDES INCREASED
     Dosage: 2 MG;1X;PO
     Route: 048

REACTIONS (11)
  - CONDITION AGGRAVATED [None]
  - HEADACHE [None]
  - ANAEMIA [None]
  - FATIGUE [None]
  - CHEST PAIN [None]
  - PARAESTHESIA [None]
  - ARTERITIS [None]
  - VISION BLURRED [None]
  - HAEMATOMA [None]
  - ASTHENIA [None]
  - PAIN IN EXTREMITY [None]
